FAERS Safety Report 5878109-5 (Version None)
Quarter: 2008Q3

REPORT INFORMATION
  Report Type: 
  Country: None (occurrence: None)
  Receive Date: 20080911
  Receipt Date: 20080903
  Transmission Date: 20090109
  Serious: Yes (Hospitalization)
  Sender: FDA-Public Use
  Company Number: KR-ROCHE-584921

PATIENT
  Sex: Female
  Weight: 57 kg

DRUGS (11)
  1. CAPECITABINE [Suspect]
     Indication: GASTRIC CANCER
     Dosage: REPORTED FREQUENCY- D1-14 Q3W BID. TEMPORARILY INTERRUPTED ON 03 SEPTEMBER 2008
     Route: 048
     Dates: start: 20080117, end: 20080903
  2. BLINDED BEVACIZUMAB [Suspect]
     Indication: GASTRIC CANCER
     Dosage: FORM: INFUSION. FREQUENCY- D1Q3W
     Route: 042
     Dates: start: 20080117
  3. CISPLATIN [Suspect]
     Indication: GASTRIC CANCER
     Dosage: FORM: INFUSION. FREQUENCY- D1Q3W
     Route: 042
     Dates: start: 20080117, end: 20080513
  4. NATEGLINIDE [Concomitant]
     Dates: start: 20080422
  5. NATEGLINIDE [Concomitant]
     Dates: start: 20080814
  6. INSULIN GLARGINE [Concomitant]
     Dosage: UNITS: /U
     Dates: start: 20080510
  7. BEARSE [Concomitant]
     Dates: start: 20080821
  8. OXYCODONE HCL [Concomitant]
     Dates: start: 20080821
  9. AMLODIPINE BESYLATE [Concomitant]
     Dates: start: 20080624
  10. GABAPENTIN [Concomitant]
     Dates: start: 20080628
  11. PREDNISOLONE [Concomitant]
     Dates: start: 20080702

REACTIONS (1)
  - HYPERBILIRUBINAEMIA [None]
